FAERS Safety Report 13274797 (Version 2)
Quarter: 2017Q1

REPORT INFORMATION
  Report Type: Spontaneous
  Country: FR (occurrence: FR)
  Receive Date: 20170227
  Receipt Date: 20170321
  Transmission Date: 20170428
  Serious: Yes (Other)
  Sender: FDA-Public Use
  Company Number: FR-ABBVIE-17P-056-1883804-00

PATIENT
  Sex: Male
  Weight: 45 kg

DRUGS (2)
  1. NORVIR [Suspect]
     Active Substance: RITONAVIR
     Indication: HIV INFECTION
     Route: 048
  2. NORVIR [Suspect]
     Active Substance: RITONAVIR
     Route: 048

REACTIONS (3)
  - Dysphagia [Recovered/Resolved]
  - Throat cancer [Unknown]
  - Drug administration error [Unknown]
